FAERS Safety Report 21053348 (Version 2)
Quarter: 2022Q3

REPORT INFORMATION
  Report Type: Spontaneous
  Country: JP (occurrence: JP)
  Receive Date: 20220707
  Receipt Date: 20220727
  Transmission Date: 20221027
  Serious: Yes (Death, Other)
  Sender: FDA-Public Use
  Company Number: JP-BAYER-2022A093895

PATIENT
  Age: 81 Year
  Sex: Male

DRUGS (6)
  1. XOFIGO [Suspect]
     Active Substance: RADIUM RA-223 DICHLORIDE
     Indication: Hormone-refractory prostate cancer
     Dosage: ONCE
     Dates: start: 20210119, end: 20210316
  2. XOFIGO [Suspect]
     Active Substance: RADIUM RA-223 DICHLORIDE
     Indication: Metastases to bone
     Dosage: ONCE
  3. XOFIGO [Suspect]
     Active Substance: RADIUM RA-223 DICHLORIDE
     Indication: Hormone-refractory prostate cancer
     Dosage: ONCE
  4. ERLEADA [Concomitant]
     Active Substance: APALUTAMIDE
     Dosage: DAILY DOSE 240MG
     Dates: start: 20201006, end: 20210316
  5. CALCIUM CARBONATE\CHOLECALCIFEROL\MAGNESIUM CARBONATE [Concomitant]
     Active Substance: CALCIUM CARBONATE\CHOLECALCIFEROL\MAGNESIUM CARBONATE
     Dosage: DAILY DOSE 2 DF
     Dates: start: 20190307
  6. TADALAFIL [Concomitant]
     Active Substance: TADALAFIL
     Dosage: DAILY DOSE 5 MG
     Dates: start: 20210216

REACTIONS (3)
  - Hormone-refractory prostate cancer [Fatal]
  - Metastases to lymph nodes [Not Recovered/Not Resolved]
  - General physical health deterioration [Not Recovered/Not Resolved]

NARRATIVE: CASE EVENT DATE: 20210408
